FAERS Safety Report 7588834-6 (Version None)
Quarter: 2011Q3

REPORT INFORMATION
  Report Type: 
  Country: None (occurrence: None)
  Receive Date: 20110705
  Receipt Date: 20110628
  Transmission Date: 20111222
  Serious: No
  Sender: FDA-Public Use
  Company Number: US-JNJFOC-20110700116

PATIENT
  Sex: Female
  Weight: 65.77 kg

DRUGS (2)
  1. FENTANYL-100 [Suspect]
     Indication: BACK DISORDER
     Route: 062
     Dates: start: 20110623
  2. HYDROMORPHONE HCL [Concomitant]
     Indication: BREAKTHROUGH PAIN
     Dosage: 4MG EVERY 8-12 HOURS AS NEEDED
     Route: 048

REACTIONS (2)
  - WRONG TECHNIQUE IN DRUG USAGE PROCESS [None]
  - PRODUCT ADHESION ISSUE [None]
